FAERS Safety Report 21485828 (Version 1)
Quarter: 2022Q4

REPORT INFORMATION
  Report Type: Spontaneous
  Country: US (occurrence: None)
  Receive Date: 20221020
  Receipt Date: 20221020
  Transmission Date: 20230112
  Serious: Yes (Life-Threatening)
  Sender: FDA-Public Use
  Company Number: None

PATIENT
  Age: 66 Year
  Sex: Male
  Weight: 99 kg

DRUGS (23)
  1. REMDESIVIR [Suspect]
     Active Substance: REMDESIVIR
     Indication: COVID-19
     Dosage: FREQUENCY : ONCE;?
     Route: 042
  2. REMDESIVIR [Suspect]
     Active Substance: REMDESIVIR
     Indication: COVID-19
     Dosage: FREQUENCY : DAILY;?
     Route: 042
  3. DEXAMETHASONE [Concomitant]
     Active Substance: DEXAMETHASONE
     Dates: start: 20220829, end: 20220909
  4. AMLODIPINE [Concomitant]
     Active Substance: AMLODIPINE BESYLATE
     Dates: start: 20220826, end: 20220909
  5. ASPIRIN [Concomitant]
     Active Substance: ASPIRIN
     Dates: start: 20220826, end: 20220909
  6. ATORVASTATIN [Concomitant]
     Active Substance: ATORVASTATIN
     Dates: start: 20220826, end: 20220909
  7. BUPROPION [Concomitant]
     Active Substance: BUPROPION
     Dates: start: 20220826, end: 20220909
  8. CARVEDILOL [Concomitant]
     Active Substance: CARVEDILOL
     Dates: start: 20220826, end: 20220909
  9. CLOPIDOGREL [Concomitant]
     Active Substance: CLOPIDOGREL BISULFATE
     Dates: start: 20220826, end: 20220909
  10. EMPAGLIFLOZIN [Concomitant]
     Active Substance: EMPAGLIFLOZIN
     Dates: start: 20220826, end: 20220909
  11. ISOSORBIDE MONONITRATE [Concomitant]
     Active Substance: ISOSORBIDE MONONITRATE
     Dates: start: 20220826, end: 20220909
  12. OXYBUTYNIN [Concomitant]
     Active Substance: OXYBUTYNIN
     Dates: start: 20220826, end: 20220909
  13. PIOGLITAZONE [Concomitant]
     Active Substance: PIOGLITAZONE
     Dates: start: 20220826, end: 20220909
  14. TAMSULOSIN [Concomitant]
     Active Substance: TAMSULOSIN
     Dates: start: 20220826, end: 20220909
  15. TERAZOSIN [Concomitant]
     Active Substance: TERAZOSIN HYDROCHLORIDE
     Dates: start: 20220826, end: 20220909
  16. TORSEMIDE [Concomitant]
     Active Substance: TORSEMIDE
     Dates: end: 20220909
  17. TRAZODONE [Concomitant]
     Active Substance: TRAZODONE HYDROCHLORIDE
     Dates: start: 20220826, end: 20220909
  18. PANTOPRAZOLE [Concomitant]
     Active Substance: PANTOPRAZOLE
     Dates: start: 20220827, end: 20220909
  19. CEFEPIME [Concomitant]
     Active Substance: CEFEPIME HYDROCHLORIDE
     Dates: start: 20220830, end: 20220908
  20. SODIUM ZIRCONIUM CYCLOSILICATE [Concomitant]
     Active Substance: SODIUM ZIRCONIUM CYCLOSILICATE
     Dates: end: 20220907
  21. IRON SUCROSE [Concomitant]
     Active Substance: IRON SUCROSE
     Dates: start: 20220829, end: 20220902
  22. HEPARIN [Concomitant]
     Active Substance: HEPARIN SODIUM
     Dates: start: 20220829, end: 20220903
  23. ZINC SULFATE [Concomitant]
     Active Substance: ZINC SULFATE
     Dates: start: 20220830, end: 20220909

REACTIONS (4)
  - Acute kidney injury [None]
  - Hypovolaemia [None]
  - Hypotension [None]
  - Hyperkalaemia [None]

NARRATIVE: CASE EVENT DATE: 20220902
